FAERS Safety Report 6985040-0 (Version None)
Quarter: 2010Q3

REPORT INFORMATION
  Report Type: 
  Country: None (occurrence: None)
  Receive Date: 20100915
  Receipt Date: 20100903
  Transmission Date: 20110219
  Serious: Yes (Hospitalization, Other)
  Sender: FDA-Public Use
  Company Number: PHHY2010US59492

PATIENT
  Sex: Female

DRUGS (1)
  1. TRILEPTAL [Suspect]

REACTIONS (11)
  - AMNESIA [None]
  - ASTHENIA [None]
  - BLOOD SODIUM DECREASED [None]
  - CONFUSIONAL STATE [None]
  - EYELID DISORDER [None]
  - FEELING COLD [None]
  - HALLUCINATION [None]
  - HEADACHE [None]
  - PRURITUS [None]
  - RESTLESS LEGS SYNDROME [None]
  - SPEECH DISORDER [None]
